FAERS Safety Report 26091436 (Version 1)
Quarter: 2025Q4

REPORT INFORMATION
  Report Type: Spontaneous
  Country: CN (occurrence: CN)
  Receive Date: 20251126
  Receipt Date: 20251126
  Transmission Date: 20260118
  Serious: Yes (Other)
  Sender: Onesource Specialty Pharma
  Company Number: CN-STRIDES ARCOLAB LIMITED-2025OS001279

PATIENT
  Age: 56 Year
  Sex: Male

DRUGS (6)
  1. ETOPOSIDE [Suspect]
     Active Substance: ETOPOSIDE
     Indication: Adenocarcinoma gastric
     Dosage: EP CHEMOTHERAPY REGIMEN; RECEIVED ON ON DAYS 1-5, RECEIVED 6 CYCLES
     Route: 065
     Dates: start: 202101, end: 202105
  2. ETOPOSIDE [Suspect]
     Active Substance: ETOPOSIDE
     Indication: Gastric neuroendocrine carcinoma
     Dosage: EP CHEMOTHERAPY REGIMEN; RECEIVED ON ON DAYS 1-5, RECEIVED 2 CYCLES
     Route: 065
     Dates: start: 202202, end: 202203
  3. ETOPOSIDE [Suspect]
     Active Substance: ETOPOSIDE
     Indication: Metastases to liver
  4. CISPLATIN [Suspect]
     Active Substance: CISPLATIN
     Indication: Adenocarcinoma gastric
     Dosage: EP CHEMOTHERAPY REGIMEN; RECEIVED ON ON DAYS 1-3, RECEIVED 6 CYCLES
     Route: 065
     Dates: start: 202101, end: 202105
  5. CISPLATIN [Suspect]
     Active Substance: CISPLATIN
     Indication: Gastric neuroendocrine carcinoma
     Dosage: EP CHEMOTHERAPY REGIMEN; RECEIVED ON ON DAYS 1-3, RECEIVED 2 CYCLES
     Route: 065
     Dates: start: 202202, end: 202203
  6. CISPLATIN [Suspect]
     Active Substance: CISPLATIN
     Indication: Metastases to lymph nodes

REACTIONS (2)
  - Neoplasm progression [Unknown]
  - Off label use [Unknown]

NARRATIVE: CASE EVENT DATE: 20220101
